FAERS Safety Report 8840678 (Version 2)
Quarter: 2012Q4

REPORT INFORMATION
  Report Type: 
  Country: US (occurrence: US)
  Receive Date: 20121015
  Receipt Date: 20121212
  Transmission Date: 20130627
  Serious: No
  Sender: FDA-Public Use
  Company Number: US-BAYER-2012-107396

PATIENT
  Age: 82 Year
  Sex: Female

DRUGS (1)
  1. EOVIST [Suspect]
     Indication: NUCLEAR MAGNETIC RESONANCE IMAGING LIVER
     Dosage: 9 ml, UNK
     Route: 042
     Dates: start: 20121011, end: 20121011

REACTIONS (1)
  - Drug ineffective [None]
